FAERS Safety Report 8364484-9 (Version None)
Quarter: 2012Q2

REPORT INFORMATION
  Report Type: 
  Country: None (occurrence: None)
  Receive Date: 20120516
  Receipt Date: 20120508
  Transmission Date: 20120825
  Serious: Yes (Other)
  Sender: FDA-Public Use
  Company Number: US-BAYER-2012-023574

PATIENT
  Age: 51 Year
  Sex: Female

DRUGS (7)
  1. YASMIN [Suspect]
  2. YAZ [Suspect]
     Indication: HAEMORRHAGIC DIATHESIS
  3. PROTONIX [Concomitant]
  4. AYGESTIN [Concomitant]
     Indication: MENORRHAGIA
     Dosage: UNK
  5. BENICAR [Concomitant]
  6. ZYRTEC [Concomitant]
  7. CALCIUM [Concomitant]

REACTIONS (9)
  - PAIN [None]
  - QUALITY OF LIFE DECREASED [None]
  - ANHEDONIA [None]
  - DEEP VEIN THROMBOSIS [None]
  - INJURY [None]
  - EMOTIONAL DISTRESS [None]
  - FEAR [None]
  - ANXIETY [None]
  - PULMONARY EMBOLISM [None]
